FAERS Safety Report 13895818 (Version 14)
Quarter: 2019Q4

REPORT INFORMATION
  Report Type: Report from Study
  Country: CO (occurrence: CO)
  Receive Date: 20170823
  Receipt Date: 20191125
  Transmission Date: 20200122
  Serious: Yes (Hospitalization)
  Sender: FDA-Public Use
  Company Number: PHHY2017CO114250

PATIENT
  Age: 71 Year
  Sex: Female
  Weight: 61 kg

DRUGS (9)
  1. AMLODIPINE [Concomitant]
     Active Substance: AMLODIPINE BESYLATE
     Indication: PRODUCT USED FOR UNKNOWN INDICATION
     Dosage: UNK
     Route: 065
  2. FOLIC ACID. [Concomitant]
     Active Substance: FOLIC ACID
     Indication: PRODUCT USED FOR UNKNOWN INDICATION
     Dosage: UNK
     Route: 065
  3. SANDOSTATIN LAR DEPOT [Suspect]
     Active Substance: OCTREOTIDE ACETATE
     Indication: PANCREATIC NEUROENDOCRINE TUMOUR
     Dosage: 20 MG, QMO
     Route: 030
     Dates: start: 19960322
  4. ATORVASTATIN [Suspect]
     Active Substance: ATORVASTATIN
     Indication: PRODUCT USED FOR UNKNOWN INDICATION
     Route: 065
  5. LOSARTAN. [Suspect]
     Active Substance: LOSARTAN
     Indication: PRODUCT USED FOR UNKNOWN INDICATION
     Dosage: UNK
     Route: 065
  6. METFORMINE HCL [Suspect]
     Active Substance: METFORMIN HYDROCHLORIDE
     Indication: PRODUCT USED FOR UNKNOWN INDICATION
     Dosage: UNK
     Route: 065
  7. FERROUS SULFATE. [Concomitant]
     Active Substance: FERROUS SULFATE
     Indication: PRODUCT USED FOR UNKNOWN INDICATION
     Dosage: UNK
     Route: 065
  8. HYDROCHLOROTHIAZIDE. [Concomitant]
     Active Substance: HYDROCHLOROTHIAZIDE
     Indication: PRODUCT USED FOR UNKNOWN INDICATION
     Route: 065
  9. AFINITOR [Suspect]
     Active Substance: EVEROLIMUS
     Indication: PANCREATIC NEUROENDOCRINE TUMOUR
     Dosage: 10 MG, QD
     Route: 048
     Dates: start: 20170627

REACTIONS (36)
  - Pain in extremity [Unknown]
  - Mobility decreased [Unknown]
  - Feeling cold [Unknown]
  - Lip dry [Unknown]
  - Vulvovaginal pruritus [Unknown]
  - Pruritus [Unknown]
  - Arthralgia [Unknown]
  - Yellow skin [Unknown]
  - Choking sensation [Unknown]
  - Skin burning sensation [Unknown]
  - Fatigue [Unknown]
  - Mouth injury [Unknown]
  - Dizziness [Unknown]
  - Burning sensation [Unknown]
  - Joint injury [Unknown]
  - Loss of personal independence in daily activities [Unknown]
  - Tooth disorder [Unknown]
  - Saliva altered [Unknown]
  - Abdominal pain upper [Unknown]
  - Tendon discomfort [Unknown]
  - Alopecia [Unknown]
  - Headache [Unknown]
  - Chest pain [Unknown]
  - Fall [Unknown]
  - Eating disorder [Unknown]
  - Vulvovaginal burning sensation [Unknown]
  - Weight decreased [Unknown]
  - Blood cholesterol increased [Unknown]
  - Drug intolerance [Unknown]
  - Onychomadesis [Unknown]
  - Blood glucose increased [Unknown]
  - Salivary hypersecretion [Unknown]
  - Musculoskeletal stiffness [Unknown]
  - Dry skin [Unknown]
  - Hypoaesthesia [Unknown]
  - Dysstasia [Unknown]

NARRATIVE: CASE EVENT DATE: 20170719
